FAERS Safety Report 6564453-5 (Version None)
Quarter: 2010Q1

REPORT INFORMATION
  Report Type: 
  Country: None (occurrence: None)
  Receive Date: 20100201
  Receipt Date: 20091230
  Transmission Date: 20100710
  Serious: No
  Sender: FDA-Public Use
  Company Number: US-BAYER-201010471NA

PATIENT
  Age: 58 Year
  Sex: Male
  Weight: 85 kg

DRUGS (2)
  1. ULTRAVIST (PHARMACY BULK) [Suspect]
     Indication: COMPUTERISED TOMOGRAM ABDOMEN
     Dosage: AS USED: 125 ML  UNIT DOSE: 500 ML
     Route: 042
     Dates: start: 20091229, end: 20091229
  2. READI-CAT [Concomitant]
     Indication: COMPUTERISED TOMOGRAM ABDOMEN
     Dosage: 2 HOURS PRIOR TO SCAN
     Route: 048
     Dates: start: 20091229, end: 20091229

REACTIONS (1)
  - URTICARIA [None]
